FAERS Safety Report 5166026-8 (Version None)
Quarter: 2006Q4

REPORT INFORMATION
  Report Type: 
  Country: None (occurrence: None)
  Receive Date: 20061128
  Receipt Date: 20061115
  Transmission Date: 20070319
  Serious: Yes (Hospitalization)
  Sender: FDA-Public Use
  Company Number: 2006PV023511

PATIENT
  Age: 58 Year
  Sex: Female
  Weight: 61.2356 kg

DRUGS (7)
  1. BYETTA [Suspect]
     Indication: DIABETES MELLITUS NON-INSULIN-DEPENDENT
     Dosage: 5 MCG; BID; SC
     Route: 058
     Dates: start: 20060401
  2. CRESTOR [Concomitant]
  3. GLUCOPHAGE [Concomitant]
  4. DIOVAN [Concomitant]
  5. ANTIOXIDANTS [Concomitant]
  6. VITAMINS [Concomitant]
  7. CLARINEX [Concomitant]

REACTIONS (4)
  - MUSCLE SPASMS [None]
  - NON-CARDIAC CHEST PAIN [None]
  - THERAPEUTIC RESPONSE UNEXPECTED [None]
  - WEIGHT DECREASED [None]
